FAERS Safety Report 5166569-7 (Version None)
Quarter: 2006Q4

REPORT INFORMATION
  Report Type: 
  Country: None (occurrence: None)
  Receive Date: 20061129
  Receipt Date: 20061115
  Transmission Date: 20070319
  Serious: Yes (Hospitalization, Other)
  Sender: FDA-Public Use
  Company Number: 2006RR-04578

PATIENT
  Age: 72 Year
  Sex: Male

DRUGS (2)
  1. CIPROFLOXACIN [Suspect]
     Indication: ENTEROBACTER BACTERAEMIA
  2. B-LACTAMS(B-LACTAMS) [Suspect]
     Indication: ENTEROBACTER BACTERAEMIA

REACTIONS (2)
  - FACTOR V INHIBITION [None]
  - LUNG INFECTION [None]
